FAERS Safety Report 17062180 (Version 6)
Quarter: 2021Q1

REPORT INFORMATION
  Report Type: Report from Study
  Country: US (occurrence: US)
  Receive Date: 20191122
  Receipt Date: 20210311
  Transmission Date: 20210419
  Serious: No
  Sender: FDA-Public Use
  Company Number: NVSC2019US043676

PATIENT
  Age: 38 Year
  Sex: Male

DRUGS (1)
  1. COSENTYX [Suspect]
     Active Substance: SECUKINUMAB
     Indication: PSORIATIC ARTHROPATHY
     Dosage: 300 MG
     Route: 065
     Dates: start: 20171007

REACTIONS (12)
  - Oropharyngeal pain [Unknown]
  - Feeling abnormal [Recovering/Resolving]
  - Limb deformity [Unknown]
  - Illness [Unknown]
  - Balance disorder [Unknown]
  - Inflammation [Unknown]
  - Anosmia [Unknown]
  - Cough [Unknown]
  - Ageusia [Unknown]
  - SARS-CoV-2 test positive [Unknown]
  - Nasopharyngitis [Unknown]
  - Sinus disorder [Unknown]

NARRATIVE: CASE EVENT DATE: 20201130
